APPROVED DRUG PRODUCT: LEUCOVORIN CALCIUM
Active Ingredient: LEUCOVORIN CALCIUM
Strength: EQ 50MG BASE/VIAL
Dosage Form/Route: INJECTABLE;INJECTION
Application: A088939 | Product #001
Applicant: ABRAXIS PHARMACEUTICAL PRODUCTS
Approved: Dec 1, 1986 | RLD: No | RS: No | Type: DISCN